FAERS Safety Report 13452935 (Version 3)
Quarter: 2017Q2

REPORT INFORMATION
  Report Type: Report from Study
  Country: US (occurrence: US)
  Receive Date: 20170418
  Receipt Date: 20170615
  Transmission Date: 20170830
  Serious: Yes (Other)
  Sender: FDA-Public Use
  Company Number: US-PFIZER INC-2017055023

PATIENT
  Age: 64 Year
  Sex: Female

DRUGS (1)
  1. IBRANCE [Suspect]
     Active Substance: PALBOCICLIB
     Indication: BREAST CANCER
     Dosage: 125 MG, CYCLIC (DAILY; 3 WEEKS ON/ 1WEEK OFF)
     Route: 048
     Dates: start: 20170201

REACTIONS (12)
  - Dizziness [Not Recovered/Not Resolved]
  - Dyspnoea [Not Recovered/Not Resolved]
  - Fatigue [Recovering/Resolving]
  - Headache [Recovering/Resolving]
  - Alopecia [Unknown]
  - Sleep disorder [Recovering/Resolving]
  - Nausea [Recovering/Resolving]
  - Depression [Unknown]
  - Drug dose omission [Unknown]
  - Bone marrow failure [Unknown]
  - Viral upper respiratory tract infection [Not Recovered/Not Resolved]
  - Abnormal dreams [Unknown]
